FAERS Safety Report 24214552 (Version 4)
Quarter: 2024Q4

REPORT INFORMATION
  Report Type: Report from Study
  Country: US (occurrence: US)
  Receive Date: 20240815
  Receipt Date: 20241220
  Transmission Date: 20250115
  Serious: Yes (Hospitalization, Other)
  Sender: SUNOVION
  Company Number: US-SUMITOMO PHARMA SWITZERLAND GMBH-2024SPA000921

PATIENT

DRUGS (2)
  1. ORGOVYX [Suspect]
     Active Substance: RELUGOLIX
     Indication: Prostate cancer
     Dosage: UNK
     Route: 065
  2. ORGOVYX [Suspect]
     Active Substance: RELUGOLIX
     Dosage: 120 MG, QD
     Route: 048
     Dates: start: 20240518

REACTIONS (8)
  - Urinary retention [Unknown]
  - Urinary bladder haemorrhage [Unknown]
  - Urinary tract infection [Unknown]
  - Radiation inflammation [Unknown]
  - Peripheral swelling [Unknown]
  - Joint swelling [Unknown]
  - Constipation [Unknown]
  - Hot flush [Unknown]
